FAERS Safety Report 6567871-4 (Version None)
Quarter: 2010Q1

REPORT INFORMATION
  Report Type: 
  Country: None (occurrence: None)
  Receive Date: 20100203
  Receipt Date: 20100121
  Transmission Date: 20100710
  Serious: Yes (Hospitalization)
  Sender: FDA-Public Use
  Company Number: PHEH2009US18602

PATIENT
  Sex: Female

DRUGS (2)
  1. EXJADE [Suspect]
     Indication: MYELODYSPLASTIC SYNDROME
     Dosage: 1000 MG, QD
     Route: 048
     Dates: start: 20090821, end: 20091024
  2. EXJADE [Suspect]
     Indication: IRON OVERLOAD

REACTIONS (7)
  - BLOOD ALKALINE PHOSPHATASE INCREASED [None]
  - BLOOD GLUCOSE DECREASED [None]
  - CHOLELITHIASIS [None]
  - CHOLESTASIS [None]
  - HYPERBILIRUBINAEMIA [None]
  - HYPOTENSION [None]
  - NAUSEA [None]
